FAERS Safety Report 8313751-3 (Version None)
Quarter: 2012Q2

REPORT INFORMATION
  Report Type: 
  Country: None (occurrence: None)
  Receive Date: 20120426
  Receipt Date: 20110808
  Transmission Date: 20120825
  Serious: Yes (Other)
  Sender: FDA-Public Use
  Company Number: US-TEVA-US019345

PATIENT
  Age: 26 Year
  Sex: Male
  Weight: 68 kg

DRUGS (3)
  1. LAMICTAL [Concomitant]
     Indication: BIPOLAR DISORDER
     Route: 065
  2. SEROQUEL [Concomitant]
     Indication: SCHIZOPHRENIA
     Route: 065
  3. PROVIGIL [Suspect]
     Indication: SOMNOLENCE
     Dosage: 300 MILLIGRAM;
     Route: 048
     Dates: start: 20060801

REACTIONS (4)
  - HALLUCINATION, AUDITORY [None]
  - ABNORMAL BEHAVIOUR [None]
  - RESTLESSNESS [None]
  - FEELING JITTERY [None]
